FAERS Safety Report 6398128-2 (Version None)
Quarter: 2009Q4

REPORT INFORMATION
  Report Type: 
  Country: None (occurrence: None)
  Receive Date: 20091013
  Receipt Date: 20090910
  Transmission Date: 20100525
  Serious: No
  Sender: FDA-Public Use
  Company Number: US-BAYER-200914410BCC

PATIENT
  Age: 19 Year
  Sex: Male
  Weight: 79 kg

DRUGS (1)
  1. ALEVE (CAPLET) [Suspect]
     Indication: HEADACHE
     Dosage: TOTAL DAILY DOSE: 440 MG  UNIT DOSE: 220 MG
     Route: 048
     Dates: start: 20090906

REACTIONS (3)
  - FOREIGN BODY [None]
  - FOREIGN BODY ASPIRATION [None]
  - NON-CARDIAC CHEST PAIN [None]
